FAERS Safety Report 19829362 (Version 5)
Quarter: 2021Q4

REPORT INFORMATION
  Report Type: Spontaneous
  Country: US (occurrence: US)
  Receive Date: 20210914
  Receipt Date: 20211014
  Transmission Date: 20220304
  Serious: Yes (Other)
  Sender: FDA-Public Use
  Company Number: US-SANOFI-00759372

PATIENT
  Age: 36 Year
  Sex: Male

DRUGS (1)
  1. TOUJEO [Suspect]
     Active Substance: INSULIN GLARGINE
     Indication: Type 1 diabetes mellitus
     Dosage: 32 IU, QD
     Route: 065

REACTIONS (3)
  - Diabetes mellitus inadequate control [Recovered/Resolved]
  - Drug ineffective [Recovered/Resolved]
  - Product quality issue [Recovered/Resolved]
